FAERS Safety Report 15351765 (Version 1)
Quarter: 2018Q3

REPORT INFORMATION
  Report Type: Spontaneous
  Country: US (occurrence: US)
  Receive Date: 20180905
  Receipt Date: 20180905
  Transmission Date: 20181010
  Serious: Yes (Hospitalization, Other)
  Sender: FDA-Public Use
  Company Number: US-SA-2018SA246386

PATIENT
  Age: 46 Year
  Sex: Male

DRUGS (1)
  1. FABRAZYME [Suspect]
     Active Substance: AGALSIDASE BETA
     Indication: FABRY^S DISEASE
     Dosage: 70 MG, QOW
     Route: 041
     Dates: start: 20161006

REACTIONS (4)
  - Nuclear magnetic resonance imaging abnormal [Unknown]
  - Cerebrovascular accident [Unknown]
  - Dysarthria [Not Recovered/Not Resolved]
  - Facial paralysis [Unknown]

NARRATIVE: CASE EVENT DATE: 201808
